FAERS Safety Report 9670793 (Version 1)
Quarter: 2013Q4

REPORT INFORMATION
  Report Type: Spontaneous
  Country: CA (occurrence: CA)
  Receive Date: 20131106
  Receipt Date: 20131106
  Transmission Date: 20140711
  Serious: Yes (Other)
  Sender: FDA-Public Use
  Company Number: CA-AMGEN-CANSP2013077916

PATIENT
  Age: 39 Year
  Sex: Female

DRUGS (3)
  1. ENBREL [Suspect]
     Indication: ANKYLOSING SPONDYLITIS
     Dosage: 50 MG, UNK
     Route: 065
     Dates: start: 20121215
  2. MOTRIN [Concomitant]
     Dosage: 400 MG, QD AS NECESSARY
  3. METHOTREXATE [Concomitant]
     Dosage: 20 MG, QWK
     Route: 058

REACTIONS (2)
  - Surgery [Unknown]
  - Postoperative wound infection [Unknown]
